FAERS Safety Report 6256541-8 (Version None)
Quarter: 2009Q3

REPORT INFORMATION
  Report Type: 
  Country: None (occurrence: None)
  Receive Date: 20090706
  Receipt Date: 20090703
  Transmission Date: 20100115
  Serious: Yes (Death)
  Sender: FDA-Public Use
  Company Number: JP-JNJFOC-20090603507

PATIENT
  Sex: Female
  Weight: 55 kg

DRUGS (21)
  1. DUROTEP MT PATCH [Suspect]
     Route: 062
  2. DUROTEP MT PATCH [Suspect]
     Indication: CANCER PAIN
     Route: 062
  3. OPSO [Concomitant]
     Indication: CANCER PAIN
     Route: 048
  4. OXYCONTIN [Concomitant]
     Indication: CANCER PAIN
     Route: 048
  5. OXYNORM [Concomitant]
     Route: 048
  6. OXYNORM [Concomitant]
     Indication: CANCER PAIN
     Route: 048
  7. LOXONIN [Concomitant]
     Indication: ANALGESIC THERAPY
     Route: 048
  8. MUCOSTA [Concomitant]
     Route: 048
  9. VOLTAREN [Concomitant]
     Indication: ANALGESIC THERAPY
     Dosage: AS NEEDED
     Route: 054
  10. NOVAMIN [Concomitant]
     Route: 048
  11. NOVAMIN [Concomitant]
     Dosage: AS NEEDED
     Route: 048
  12. MAGMITT [Concomitant]
     Route: 048
  13. MOBIC [Concomitant]
     Indication: ANALGESIC THERAPY
     Route: 048
  14. ALDACTONE [Concomitant]
     Route: 048
  15. GASMOTIN [Concomitant]
     Route: 048
  16. ROPION [Concomitant]
     Indication: ANALGESIC THERAPY
     Route: 042
  17. ZANTAC [Concomitant]
     Route: 042
  18. LINOLOSAL [Concomitant]
     Route: 042
  19. NOVAMIN [Concomitant]
     Route: 042
  20. LASIX [Concomitant]
     Route: 042
  21. SANDOSTATIN [Concomitant]
     Route: 062

REACTIONS (2)
  - DRUG PRESCRIBING ERROR [None]
  - UTERINE CANCER [None]
